FAERS Safety Report 5050055-9 (Version None)
Quarter: 2006Q2

REPORT INFORMATION
  Report Type: 
  Country: None (occurrence: None)
  Receive Date: 20060601
  Receipt Date: 20060315
  Transmission Date: 20061013
  Serious: No
  Sender: FDA-Public Use
  Company Number: US200602005577

PATIENT
  Sex: Male

DRUGS (6)
  1. CYMBALTA [Suspect]
     Indication: NEUROPATHY PERIPHERAL
     Dosage: 30 MG, DAILY (1/D)
     Dates: start: 20060221
  2. OXYCONTIN [Concomitant]
  3. OXYCODONE (OXYCODONE) [Concomitant]
  4. WELLBUTRIN [Concomitant]
  5. NEXIUM /UNK/ (ESOMEPRAZOLE) [Concomitant]
  6. KEPPRA /USA/ (LEVETIRACETAM) [Concomitant]

REACTIONS (3)
  - SOMNOLENCE [None]
  - URINARY TRACT INFECTION [None]
  - URINE ODOUR ABNORMAL [None]
